FAERS Safety Report 12389007 (Version 1)
Quarter: 2016Q2

REPORT INFORMATION
  Report Type: Spontaneous
  Country: DE (occurrence: DE)
  Receive Date: 20160520
  Receipt Date: 20160520
  Transmission Date: 20160815
  Serious: Yes (Other)
  Sender: FDA-Public Use
  Company Number: DE-SA-2016SA095627

PATIENT
  Age: 74 Year
  Sex: Male

DRUGS (6)
  1. METOPROLOL. [Concomitant]
     Active Substance: METOPROLOL
     Indication: HYPERTENSION
     Route: 065
  2. FUROSEMIDE. [Concomitant]
     Active Substance: FUROSEMIDE
     Route: 065
  3. COLCHICINE. [Suspect]
     Active Substance: COLCHICINE
     Indication: GOUTY ARTHRITIS
     Route: 065
  4. RAMIPRIL. [Concomitant]
     Active Substance: RAMIPRIL
     Indication: HYPERTENSION
     Route: 065
  5. RASBURICASE [Suspect]
     Active Substance: RASBURICASE
     Indication: GOUTY ARTHRITIS
     Route: 042
  6. ALLOPURINOL. [Suspect]
     Active Substance: ALLOPURINOL
     Indication: GOUTY ARTHRITIS
     Route: 065

REACTIONS (6)
  - Diarrhoea [Unknown]
  - Petechiae [Unknown]
  - Dermatitis allergic [Unknown]
  - Hypersensitivity vasculitis [Unknown]
  - Nausea [Unknown]
  - Product use issue [Unknown]
